FAERS Safety Report 6449753-1 (Version None)
Quarter: 2009Q4

REPORT INFORMATION
  Report Type: 
  Country: None (occurrence: None)
  Receive Date: 20091120
  Receipt Date: 20091105
  Transmission Date: 20100525
  Serious: Yes (Other)
  Sender: FDA-Public Use
  Company Number: CH-GENENTECH-294192

PATIENT
  Weight: 70 kg

DRUGS (6)
  1. RITUXIMAB [Suspect]
     Indication: CHRONIC LYMPHOCYTIC LEUKAEMIA
     Dosage: 800 MG, UNK
     Route: 042
     Dates: start: 20090119, end: 20090504
  2. FLUDARA [Concomitant]
     Indication: CHRONIC LYMPHOCYTIC LEUKAEMIA
     Dosage: UNK
     Dates: start: 20090119, end: 20090504
  3. ENDOXAN [Concomitant]
     Indication: CHRONIC LYMPHOCYTIC LEUKAEMIA
     Dosage: UNK
     Dates: start: 20090119, end: 20090504
  4. PREDNISONE [Concomitant]
     Indication: PREMEDICATION
     Dosage: UNK
     Dates: start: 20090119, end: 20090504
  5. DAFALGAN [Concomitant]
     Indication: PREMEDICATION
     Dosage: UNK
     Dates: start: 20090119, end: 20090504
  6. TAVEGYL [Concomitant]
     Indication: PREMEDICATION
     Dosage: UNK
     Dates: start: 20090119, end: 20090504

REACTIONS (1)
  - AGRANULOCYTOSIS [None]
